FAERS Safety Report 9469863 (Version 1)
Quarter: 2013Q3

REPORT INFORMATION
  Report Type: Spontaneous
  Country: JP (occurrence: JP)
  Receive Date: 20130822
  Receipt Date: 20130822
  Transmission Date: 20140515
  Serious: Yes (Death)
  Sender: FDA-Public Use
  Company Number: JP-IAC JAPAN XML-GBR-2013-0015376

PATIENT
  Age: 89 Year
  Sex: Male

DRUGS (5)
  1. NORSPAN [Suspect]
     Indication: BACK PAIN
     Dosage: 10 MCG, Q1H
     Route: 062
     Dates: start: 20130722, end: 20130731
  2. NORSPAN [Suspect]
     Dosage: 5 MCG, Q1H
     Route: 062
     Dates: start: 20130708, end: 20130721
  3. ATELEC [Concomitant]
     Route: 048
  4. FEBUXOSTAT [Concomitant]
     Route: 048
  5. FRANDOL [Concomitant]
     Route: 061

REACTIONS (1)
  - Renal failure chronic [Fatal]
